FAERS Safety Report 6559225-1 (Version None)
Quarter: 2010Q1

REPORT INFORMATION
  Report Type: 
  Country: None (occurrence: None)
  Receive Date: 20100129
  Receipt Date: 20100120
  Transmission Date: 20100710
  Serious: Yes (Hospitalization)
  Sender: FDA-Public Use
  Company Number: FR-GENENTECH-297251

PATIENT
  Sex: Male

DRUGS (7)
  1. RITUXIMAB [Suspect]
     Indication: B-CELL LYMPHOMA
     Dosage: 700 MG, UNK
     Route: 042
     Dates: start: 20071019, end: 20090928
  2. FLUDARABINE [Concomitant]
     Indication: B-CELL LYMPHOMA
     Dosage: FIRST CYCLE
     Dates: start: 20071019
  3. FLUDARABINE [Concomitant]
     Dosage: SECOND CYCLE
     Dates: start: 20071116
  4. FLUDARABINE [Concomitant]
     Dosage: THIRD CYCLE
     Dates: start: 20071217
  5. FLUDARABINE [Concomitant]
     Dosage: FOURTH CYCLE
     Dates: start: 20080114
  6. BACTRIM [Concomitant]
     Indication: ANTIFUNGAL PROPHYLAXIS
     Dosage: UNK
  7. ZELITREX [Concomitant]
     Indication: ANTIVIRAL PROPHYLAXIS
     Dosage: UNK

REACTIONS (1)
  - PROGRESSIVE MULTIFOCAL LEUKOENCEPHALOPATHY [None]
